FAERS Safety Report 7850729-8 (Version None)
Quarter: 2011Q4

REPORT INFORMATION
  Report Type: 
  Country: None (occurrence: None)
  Receive Date: 20111026
  Receipt Date: 20111014
  Transmission Date: 20120403
  Serious: Yes (Hospitalization)
  Sender: FDA-Public Use
  Company Number: FR-SANOFI-AVENTIS-2011SA067508

PATIENT
  Age: 60 Year
  Sex: Male
  Weight: 62 kg

DRUGS (4)
  1. ELOXATIN [Suspect]
     Indication: NON-SMALL CELL LUNG CANCER
     Route: 042
     Dates: start: 20110906, end: 20110906
  2. METHYLPREDNISOLONE [Concomitant]
     Indication: NON-SMALL CELL LUNG CANCER
     Route: 042
  3. IBUPROFEN [Concomitant]
     Route: 065
  4. ALIMTA [Suspect]
     Indication: NON-SMALL CELL LUNG CANCER
     Route: 042
     Dates: start: 20110906, end: 20110906

REACTIONS (2)
  - MIXED LIVER INJURY [None]
  - ACUTE GENERALISED EXANTHEMATOUS PUSTULOSIS [None]
